FAERS Safety Report 14938559 (Version 1)
Quarter: 2018Q2

REPORT INFORMATION
  Report Type: Spontaneous
  Country: IN (occurrence: IN)
  Receive Date: 20180525
  Receipt Date: 20180525
  Transmission Date: 20180711
  Serious: Yes (Death, Other)
  Sender: FDA-Public Use
  Company Number: IN-JNJFOC-20180531573

PATIENT

DRUGS (3)
  1. CARBOPLATIN. [Suspect]
     Active Substance: CARBOPLATIN
     Indication: HEPATOBLASTOMA
     Dosage: ON DAY 1, ADMINISTERED IN A CONTINUOUS 24-HOUR INFUSION
     Route: 065
  2. CISPLATIN. [Suspect]
     Active Substance: CISPLATIN
     Indication: HEPATOBLASTOMA
     Dosage: ON DAY 1, ADMINISTERED IN A CONTINUOUS 24-HOUR INFUSION
     Route: 065
  3. DOXORUBICIN HYDROCHLORIDE. [Suspect]
     Active Substance: DOXORUBICIN HYDROCHLORIDE
     Indication: HEPATOBLASTOMA
     Dosage: ON DAY 2 AND 3
     Route: 042

REACTIONS (5)
  - Neutropenia [Unknown]
  - Product use in unapproved indication [Unknown]
  - Toxicity to various agents [Fatal]
  - Off label use [Unknown]
  - Febrile neutropenia [Unknown]
